FAERS Safety Report 7049062-6 (Version None)
Quarter: 2010Q4

REPORT INFORMATION
  Report Type: 
  Country: None (occurrence: None)
  Receive Date: 20101018
  Receipt Date: 20101006
  Transmission Date: 20110411
  Serious: Yes (Other)
  Sender: FDA-Public Use
  Company Number: NL-TYCO HEALTHCARE/MALLINCKRODT-T201002091

PATIENT
  Age: 88 Year
  Sex: Male

DRUGS (1)
  1. SODIUM IODIDE I 131 [Suspect]
     Indication: HYPERTHYROIDISM

REACTIONS (7)
  - DYSPHAGIA [None]
  - DYSPNOEA [None]
  - HYPERTENSION [None]
  - HYPOTHYROIDISM [None]
  - RENAL FAILURE CHRONIC [None]
  - SQUAMOUS CELL CARCINOMA [None]
  - THYROID CANCER [None]
